FAERS Safety Report 15605828 (Version 1)
Quarter: 2018Q4

REPORT INFORMATION
  Report Type: Other
  Country: CA (occurrence: CA)
  Receive Date: 20181112
  Receipt Date: 20181112
  Transmission Date: 20190205
  Serious: Yes (Other)
  Sender: FDA-Public Use
  Company Number: CA-ALLIED PHARMA, LLC-2058711

PATIENT
  Age: 58 Year
  Sex: Male

DRUGS (3)
  1. PREDNISONE. [Suspect]
     Active Substance: PREDNISONE
     Route: 065
  2. TACROLIMUS. [Interacting]
     Active Substance: TACROLIMUS
     Route: 065
  3. CLARITHROMYCIN. [Suspect]
     Active Substance: CLARITHROMYCIN
     Indication: PNEUMONIA
     Route: 048

REACTIONS (5)
  - Tremor [Recovered/Resolved]
  - Neurotoxicity [Unknown]
  - Drug interaction [Unknown]
  - Nephropathy toxic [Recovered/Resolved]
  - Hyperglycaemia [Recovering/Resolving]
